FAERS Safety Report 5477225-X (Version None)
Quarter: 2007Q4

REPORT INFORMATION
  Report Type: 
  Country: None (occurrence: None)
  Receive Date: 20071004
  Receipt Date: 20070926
  Transmission Date: 20080405
  Serious: Yes (Hospitalization)
  Sender: FDA-Public Use
  Company Number: US-ELI_LILLY_AND_COMPANY-US200709006310

PATIENT
  Sex: Female
  Weight: 89.342 kg

DRUGS (8)
  1. BYETTA [Suspect]
     Indication: TYPE 2 DIABETES MELLITUS
     Dosage: 5 UG, 2/D
     Route: 058
     Dates: start: 20070801
  2. BYETTA [Suspect]
     Dosage: 10 UG, 2/D
     Route: 058
     Dates: start: 20070913
  3. GLUCOPHAGE [Concomitant]
     Dosage: 850 MG, 3/D
     Dates: start: 20030101
  4. VERAPAMIL [Concomitant]
     Dosage: UNK, UNKNOWN
  5. NORMODYNE [Concomitant]
     Dosage: UNK, UNKNOWN
  6. LOZOL [Concomitant]
     Dosage: UNK, UNKNOWN
  7. KLOR-CON [Concomitant]
     Dosage: UNK, UNKNOWN
  8. FISH OIL [Concomitant]
     Dosage: UNK, UNKNOWN

REACTIONS (5)
  - HEADACHE [None]
  - MUSCULOSKELETAL STIFFNESS [None]
  - PAIN [None]
  - VIRAL INFECTION [None]
  - VOMITING [None]
